FAERS Safety Report 9215996 (Version 2)
Quarter: 2013Q2

REPORT INFORMATION
  Report Type: Spontaneous
  Country: US (occurrence: None)
  Receive Date: 20130402
  Receipt Date: 20130402
  Transmission Date: 20140414
  Serious: No
  Sender: FDA-Public Use
  Company Number: 2013P1003909

PATIENT
  Sex: Male

DRUGS (3)
  1. INFUMORPH [Suspect]
     Indication: PAIN
     Route: 037
  2. INFUMORPH [Suspect]
     Indication: PAIN IN EXTREMITY
     Route: 037
  3. INFUMORPH [Suspect]
     Indication: PAIN
     Route: 037

REACTIONS (4)
  - Device kink [None]
  - Drug effect decreased [None]
  - Device dislocation [None]
  - Device malfunction [None]
